FAERS Safety Report 9009642 (Version 1)
Quarter: 2013Q1

REPORT INFORMATION
  Report Type: Spontaneous
  Country: US (occurrence: US)
  Receive Date: 20130110
  Receipt Date: 20130110
  Transmission Date: 20140127
  Serious: Yes (Death)
  Sender: FDA-Public Use
  Company Number: US-PFIZER INC-2013008334

PATIENT
  Age: 62 Year
  Sex: Male
  Weight: 117 kg

DRUGS (5)
  1. REVATIO [Suspect]
     Indication: PULMONARY HYPERTENSION
     Dosage: 20 MG, 3X/DAY
     Dates: start: 201207
  2. METFORMIN [Concomitant]
     Dosage: 1000 MG, 2X/DAY
  3. LISINOPRIL [Concomitant]
     Indication: HYPERTENSION
     Dosage: 10 MG, DAILY
  4. GLYBURIDE [Concomitant]
     Indication: DIABETES MELLITUS
     Dosage: 2 MG, 2X/DAY
  5. FUROSEMIDE [Concomitant]
     Indication: HYPERTENSION
     Dosage: 80 MG, 2X/DAY

REACTIONS (1)
  - Death [Fatal]
